FAERS Safety Report 7508250-2 (Version None)
Quarter: 2011Q2

REPORT INFORMATION
  Report Type: 
  Country: None (occurrence: None)
  Receive Date: 20110421
  Receipt Date: 20110414
  Transmission Date: 20111010
  Serious: Yes (Other)
  Sender: FDA-Public Use
  Company Number: SPV1-2010-00521

PATIENT
  Age: 7 Year
  Sex: Female
  Weight: 27.2 kg

DRUGS (4)
  1. ZOLOFT [Concomitant]
  2. CLONIDINE [Concomitant]
  3. VYVANSE [Suspect]
     Indication: ATTENTION DEFICIT/HYPERACTIVITY DISORDER
     Dosage: 20 MG, 2X/DAY: BID, ORAL
     Route: 048
     Dates: start: 20100301, end: 20100315
  4. PERIACTIN [Concomitant]

REACTIONS (3)
  - BLOOD PRESSURE INCREASED [None]
  - INAPPROPRIATE SCHEDULE OF DRUG ADMINISTRATION [None]
  - HEADACHE [None]
